FAERS Safety Report 25231223 (Version 1)
Quarter: 2025Q2

REPORT INFORMATION
  Report Type: Spontaneous
  Country: US (occurrence: US)
  Receive Date: 20250423
  Receipt Date: 20250423
  Transmission Date: 20250717
  Serious: Yes (Hospitalization, Other)
  Sender: OTSUKA
  Company Number: US-OTSUKA-2025_009453

PATIENT
  Sex: Male

DRUGS (3)
  1. ABILIFY [Suspect]
     Active Substance: ARIPIPRAZOLE
     Indication: Product used for unknown indication
     Dosage: 10 MG, QD
     Route: 048
     Dates: start: 20240809, end: 20240811
  2. ARISTADA [Suspect]
     Active Substance: ARIPIPRAZOLE LAUROXIL
     Indication: Product used for unknown indication
     Dosage: 662 MG, QM
     Route: 030
     Dates: start: 20240724
  3. ARISTADA INITIO [Suspect]
     Active Substance: ARIPIPRAZOLE LAUROXIL
     Indication: Product used for unknown indication
     Route: 030
     Dates: start: 20240724, end: 20240724

REACTIONS (5)
  - Neurological examination abnormal [Unknown]
  - Pneumonia [Unknown]
  - Mental status changes [Unknown]
  - Dysarthria [Unknown]
  - Somnolence [Unknown]

NARRATIVE: CASE EVENT DATE: 20240801
